FAERS Safety Report 9631402 (Version 1)
Quarter: 2013Q4

REPORT INFORMATION
  Report Type: Spontaneous
  Country: US (occurrence: None)
  Receive Date: 20131017
  Receipt Date: 20131017
  Transmission Date: 20140711
  Serious: No
  Sender: FDA-Public Use
  Company Number: None

PATIENT
  Age: 28 Year
  Sex: Female

DRUGS (1)
  1. PREDNISONE [Suspect]
     Indication: MULTIPLE SCLEROSIS RELAPSE

REACTIONS (1)
  - Blindness [None]
